FAERS Safety Report 24895066 (Version 1)
Quarter: 2025Q1

REPORT INFORMATION
  Report Type: Spontaneous
  Country: US (occurrence: None)
  Receive Date: 20250128
  Receipt Date: 20250128
  Transmission Date: 20250408
  Serious: Yes (Other)
  Sender: FDA-CTU
  Company Number: None

PATIENT
  Age: 31 Year
  Sex: Female
  Weight: 165.15 kg

DRUGS (11)
  1. HYRIMOZ [Suspect]
     Active Substance: ADALIMUMAB-ADAZ
     Indication: Hidradenitis
     Dosage: OTHER QUANTITY : 1 INJECTION(S);?OTHER FREQUENCY : BI-WEEKLY;?
     Route: 030
     Dates: start: 20241205, end: 20250103
  2. XARELTO [Concomitant]
     Active Substance: RIVAROXABAN
  3. ACIPHEX [Concomitant]
     Active Substance: RABEPRAZOLE SODIUM
  4. BUSPAR [Concomitant]
     Active Substance: BUSPIRONE HYDROCHLORIDE
  5. WELLBUTRIN [Concomitant]
     Active Substance: BUPROPION HYDROCHLORIDE
  6. LAMICTAL [Concomitant]
     Active Substance: LAMOTRIGINE
  7. SEROQUEL [Concomitant]
     Active Substance: QUETIAPINE FUMARATE
  8. ATIVAN [Concomitant]
     Active Substance: LORAZEPAM
  9. TRAMADOL [Concomitant]
     Active Substance: TRAMADOL
  10. FLEXERIL [Concomitant]
     Active Substance: CYCLOBENZAPRINE HYDROCHLORIDE
  11. TYLENOL [Concomitant]
     Active Substance: ACETAMINOPHEN

REACTIONS (1)
  - Oedema peripheral [None]

NARRATIVE: CASE EVENT DATE: 20241207
